FAERS Safety Report 15886925 (Version 1)
Quarter: 2019Q1

REPORT INFORMATION
  Report Type: Spontaneous
  Country: AU (occurrence: AU)
  Receive Date: 20190130
  Receipt Date: 20190130
  Transmission Date: 20190417
  Serious: Yes (Other)
  Sender: FDA-Public Use
  Company Number: AU-MICRO LABS LIMITED-ML2019-00116

PATIENT
  Age: 77 Year
  Sex: Female

DRUGS (7)
  1. AMOXICILLIN/CLAVULANIC ACID [Suspect]
     Active Substance: AMOXICILLIN\CLAVULANIC ACID
  2. RAMIPRIL. [Suspect]
     Active Substance: RAMIPRIL
  3. METHYLPREDNISOLONE. [Suspect]
     Active Substance: METHYLPREDNISOLONE
  4. FLUINDIONE [Suspect]
     Active Substance: FLUINDIONE
  5. CEFTRIAXONE. [Suspect]
     Active Substance: CEFTRIAXONE
  6. NICARDIPINE [Suspect]
     Active Substance: NICARDIPINE
  7. VILDAGLIPTIN [Suspect]
     Active Substance: VILDAGLIPTIN

REACTIONS (2)
  - Jaundice [Recovering/Resolving]
  - Hepatitis [Recovering/Resolving]
